FAERS Safety Report 8359682-4 (Version None)
Quarter: 2012Q1

REPORT INFORMATION
  Report Type: 
  Country: None (occurrence: None)
  Receive Date: 20120315
  Receipt Date: 20110610
  Transmission Date: 20120608
  Serious: Yes (Other)
  Sender: FDA-Public Use
  Company Number: PHHY2011US43686

PATIENT
  Age: 55 Year
  Sex: Female

DRUGS (6)
  1. DIOVAN [Concomitant]
  2. CYMBALTA [Concomitant]
  3. GILENYA [Suspect]
     Indication: RELAPSING-REMITTING MULTIPLE SCLEROSIS
     Dosage: 0.5 MG, BID, ORAL
     Route: 048
     Dates: start: 20101213, end: 20110401
  4. LUNESTA [Concomitant]
  5. SEROQUEL [Concomitant]
  6. TEGRETOL [Concomitant]

REACTIONS (6)
  - ABDOMINAL DISCOMFORT [None]
  - WHITE BLOOD CELL COUNT DECREASED [None]
  - HEADACHE [None]
  - LYMPHOPENIA [None]
  - OVERDOSE [None]
  - DIARRHOEA [None]
